FAERS Safety Report 18153531 (Version 8)
Quarter: 2021Q1

REPORT INFORMATION
  Report Type: Report from Study
  Country: GB (occurrence: GB)
  Receive Date: 20200816
  Receipt Date: 20210303
  Transmission Date: 20210419
  Serious: Yes (Hospitalization, Other)
  Sender: FDA-Public Use
  Company Number: NVSC2020GB220838

PATIENT
  Age: 13 Year
  Sex: Male
  Weight: 63.3 kg

DRUGS (30)
  1. TRAMETINIB [Suspect]
     Active Substance: TRAMETINIB
     Dosage: 1 MG, QD
     Route: 048
     Dates: start: 20201008
  2. TRAMETINIB [Suspect]
     Active Substance: TRAMETINIB
     Dosage: 1 MG, QD
     Route: 048
     Dates: start: 20201228, end: 20210109
  3. HYDROCORTISONE. [Concomitant]
     Active Substance: HYDROCORTISONE
     Dosage: 5 MG, TID
     Route: 065
     Dates: start: 201611, end: 20201113
  4. ONDANSETRON [Concomitant]
     Active Substance: ONDANSETRON
     Indication: NAUSEA
     Dosage: 8 MG (6?8 HRS AS REQUIRED)
     Route: 065
  5. LEVETIRACETAM. [Concomitant]
     Active Substance: LEVETIRACETAM
     Dosage: 1 G, BID
     Route: 065
     Dates: end: 20210214
  6. TRAMETINIB [Suspect]
     Active Substance: TRAMETINIB
     Indication: ASTROCYTOMA
     Dosage: 1.5 MG, QD
     Route: 048
     Dates: start: 20200716, end: 20200903
  7. HYDROCORTISONE. [Concomitant]
     Active Substance: HYDROCORTISONE
     Dosage: 5 MG, TID
     Route: 065
     Dates: end: 20210214
  8. LEVETIRACETAM. [Concomitant]
     Active Substance: LEVETIRACETAM
     Dosage: 1 G, QD
     Route: 048
     Dates: start: 20200914, end: 20210108
  9. TAZOBACTAM SODIUM AND PIPERACILLIN SODIUM [Concomitant]
     Active Substance: PIPERACILLIN SODIUM\TAZOBACTAM SODIUM
     Indication: HYPOPITUITARISM
     Dosage: 4500 MG, QID
     Route: 065
     Dates: end: 20200910
  10. HYDROCORTISONE. [Concomitant]
     Active Substance: HYDROCORTISONE
     Indication: HYPOPITUITARISM
     Dosage: 5 MG, TID
     Route: 065
     Dates: start: 201611, end: 20200731
  11. SODIUM VALPROATE [Concomitant]
     Active Substance: VALPROATE SODIUM
     Indication: EPILEPSY
     Dosage: 1 G, BID
     Route: 065
     Dates: start: 20200221, end: 20200910
  12. LEVETIRACETAM. [Concomitant]
     Active Substance: LEVETIRACETAM
     Indication: SEIZURE
     Dosage: 500 MG, BID
     Route: 065
     Dates: start: 20200824, end: 20200904
  13. HYDROCORTISONE. [Concomitant]
     Active Substance: HYDROCORTISONE
     Dosage: 7.5 MG, 15 MG
     Route: 048
     Dates: start: 201611, end: 20201008
  14. TRAMETINIB [Suspect]
     Active Substance: TRAMETINIB
     Dosage: 1.5 MG, QD
     Route: 048
     Dates: start: 20200908
  15. TRAMETINIB [Suspect]
     Active Substance: TRAMETINIB
     Dosage: 1.5 MG, QD
     Route: 048
     Dates: end: 20201007
  16. HYDROCORTISONE. [Concomitant]
     Active Substance: HYDROCORTISONE
     Dosage: IINCREASED DOSE
     Route: 065
  17. DESMOPRESSIN [Concomitant]
     Active Substance: DESMOPRESSIN
     Indication: DIABETES INSIPIDUS
     Dosage: DAILY (15 UG MORNING, 30 UG EVENING)
     Route: 065
     Dates: start: 201611, end: 20210214
  18. LOPERAMIDE [Concomitant]
     Active Substance: LOPERAMIDE
     Indication: DIARRHOEA
     Dosage: 2 MG, BID
     Route: 048
  19. LEVETIRACETAM. [Concomitant]
     Active Substance: LEVETIRACETAM
     Indication: EPILEPSY
     Dosage: 750 MG, BID
     Route: 065
     Dates: end: 20200910
  20. HYDROCORTISONE. [Concomitant]
     Active Substance: HYDROCORTISONE
     Indication: ADRENAL INSUFFICIENCY
     Dosage: 15 MG, TID
     Route: 048
     Dates: start: 201611, end: 20200910
  21. NORDITROPIN [Concomitant]
     Active Substance: SOMATROPIN
     Indication: GROWTH HORMONE DEFICIENCY
     Dosage: 1.4 MG, QD
     Route: 065
     Dates: start: 20190404, end: 20200910
  22. MELATONIN [Concomitant]
     Active Substance: MELATONIN
     Indication: POOR QUALITY SLEEP
     Dosage: 3 MG, QD (AT NIGHT)
     Route: 065
     Dates: start: 201611, end: 20200903
  23. TRAMETINIB [Suspect]
     Active Substance: TRAMETINIB
     Dosage: 1.5 MG, QD
     Route: 048
     Dates: start: 20201117
  24. TRAMETINIB [Suspect]
     Active Substance: TRAMETINIB
     Dosage: 1 MG
     Route: 048
     Dates: start: 20210125, end: 20210213
  25. COTRIMOXAZOLE [Concomitant]
     Active Substance: SULFAMETHOXAZOLE\TRIMETHOPRIM
     Indication: ANTIFUNGAL PROPHYLAXIS
     Dosage: 480 MG, BID (SAT AND SUN)
     Route: 065
     Dates: start: 201912, end: 20200906
  26. TRAMETINIB [Suspect]
     Active Substance: TRAMETINIB
     Dosage: 1 MG, QD
     Route: 048
     Dates: start: 20201126, end: 20201206
  27. LEVOTHYROXINE. [Concomitant]
     Active Substance: LEVOTHYROXINE
     Indication: HYPOPITUITARISM
     Dosage: 125 UG, QD
     Route: 065
     Dates: start: 201611, end: 20210214
  28. ONDANSETRON [Concomitant]
     Active Substance: ONDANSETRON
     Indication: VOMITING
  29. LAXIDO [Concomitant]
     Active Substance: POLYETHYLENE GLYCOL 3350\POTASSIUM CHLORIDE\SODIUM BICARBONATE\SODIUM CHLORIDE
     Indication: CONSTIPATION
     Dosage: 1 DF, BID (SACHET)
     Route: 065
  30. BACTROBAN [Concomitant]
     Active Substance: MUPIROCIN\MUPIROCIN CALCIUM
     Indication: PRODUCT USED FOR UNKNOWN INDICATION
     Dosage: UNK
     Route: 065

REACTIONS (29)
  - Fluid retention [Unknown]
  - Heart rate increased [Unknown]
  - Rhinovirus infection [Unknown]
  - Urine output decreased [Unknown]
  - Dyspnoea [Recovering/Resolving]
  - Weight increased [Unknown]
  - Joint swelling [Not Recovered/Not Resolved]
  - Body temperature decreased [Unknown]
  - Thrombocytopenia [Not Recovered/Not Resolved]
  - Ejection fraction decreased [Recovering/Resolving]
  - Blood creatinine increased [Unknown]
  - Hypothermia [Recovered/Resolved]
  - Cough [Recovering/Resolving]
  - Hypernatraemia [Not Recovered/Not Resolved]
  - Fatigue [Unknown]
  - Body temperature increased [Unknown]
  - Lethargy [Unknown]
  - Anaemia [Not Recovered/Not Resolved]
  - Pneumonitis [Recovering/Resolving]
  - Somnolence [Recovering/Resolving]
  - Pneumonia [Recovering/Resolving]
  - Gait disturbance [Unknown]
  - Bradycardia [Recovered/Resolved]
  - Oedema peripheral [Recovering/Resolving]
  - Peripheral swelling [Not Recovered/Not Resolved]
  - Respiratory rate increased [Unknown]
  - Skin fissures [Recovering/Resolving]
  - Thrombotic microangiopathy [Recovering/Resolving]
  - Paronychia [Not Recovered/Not Resolved]

NARRATIVE: CASE EVENT DATE: 20200730
